FAERS Safety Report 21575455 (Version 2)
Quarter: 2023Q1

REPORT INFORMATION
  Report Type: Other
  Country: US (occurrence: None)
  Receive Date: 20221110
  Receipt Date: 20230102
  Transmission Date: 20230418
  Serious: Yes (Hospitalization, Other)
  Sender: FDA-Public Use
  Company Number: US-ROCHE-2110499

PATIENT
  Age: 57 Year
  Sex: Female
  Weight: 77 kg

DRUGS (31)
  1. ZELBORAF [Suspect]
     Active Substance: VEMURAFENIB
     Indication: Histiocytosis
     Dosage: TAKE 4 TABS TWICE DAILY
     Route: 048
  2. ZELBORAF [Suspect]
     Active Substance: VEMURAFENIB
     Indication: Erdheim-Chester disease
     Dosage: TAKE 2 TABLET(S) BY MOUTH EVERY 12 HOURS
     Route: 048
  3. ZELBORAF [Suspect]
     Active Substance: VEMURAFENIB
     Indication: Essential hypertension
     Route: 048
  4. ZELBORAF [Suspect]
     Active Substance: VEMURAFENIB
     Indication: Alopecia scarring
     Route: 048
     Dates: start: 201704
  5. ZELBORAF [Suspect]
     Active Substance: VEMURAFENIB
     Indication: Uveitis
     Dosage: TAKE 2 TABLETS BY MOUTH EVERY 12 HOURS
     Route: 048
  6. ZELBORAF [Suspect]
     Active Substance: VEMURAFENIB
     Indication: Sunburn
  7. ZELBORAF [Suspect]
     Active Substance: VEMURAFENIB
     Indication: Alopecia areata
  8. ZELBORAF [Suspect]
     Active Substance: VEMURAFENIB
     Indication: Metabolic disorder
  9. ZELBORAF [Suspect]
     Active Substance: VEMURAFENIB
     Indication: Endophthalmitis
  10. ZELBORAF [Suspect]
     Active Substance: VEMURAFENIB
     Indication: Erdheim-Chester disease
  11. ESCITALOPRAM [Concomitant]
     Active Substance: ESCITALOPRAM OXALATE
     Route: 048
  12. ESCITALOPRAM [Concomitant]
     Active Substance: ESCITALOPRAM OXALATE
     Dosage: YES
  13. LEVOTHYROXINE [Concomitant]
     Active Substance: LEVOTHYROXINE
     Route: 048
  14. LEVOTHYROXINE [Concomitant]
     Active Substance: LEVOTHYROXINE
     Dates: start: 2017
  15. LOSARTAN [Concomitant]
     Active Substance: LOSARTAN
     Route: 048
  16. LOSARTAN [Concomitant]
     Active Substance: LOSARTAN
     Dosage: YES
     Dates: start: 202007
  17. ZOFRAN [Concomitant]
     Active Substance: ONDANSETRON HYDROCHLORIDE
     Route: 048
  18. PREDNISONE [Concomitant]
     Active Substance: PREDNISONE
     Indication: Bone pain
     Route: 065
  19. PREDNISONE [Concomitant]
     Active Substance: PREDNISONE
  20. PREDNISONE [Concomitant]
     Active Substance: PREDNISONE
     Dosage: YES
  21. DICYCLOMINE [Concomitant]
     Active Substance: DICYCLOMINE HYDROCHLORIDE
     Dosage: YES
  22. PREDNISOLONE ACETATE [Concomitant]
     Active Substance: PREDNISOLONE ACETATE
  23. PREDNISOLONE ACETATE [Concomitant]
     Active Substance: PREDNISOLONE ACETATE
  24. KETOROLAC [Concomitant]
     Active Substance: KETOROLAC TROMETHAMINE
  25. KETOROLAC [Concomitant]
     Active Substance: KETOROLAC TROMETHAMINE
  26. CALCIUM ASCORBATE [Concomitant]
     Active Substance: CALCIUM ASCORBATE
  27. VITAMIN D3 [Concomitant]
     Active Substance: CHOLECALCIFEROL
  28. ACETAMINOPHEN [Concomitant]
     Active Substance: ACETAMINOPHEN
  29. RABEPRAZOLE [Concomitant]
     Active Substance: RABEPRAZOLE
  30. OMEPRAZOLE [Concomitant]
     Active Substance: OMEPRAZOLE
  31. DENOSUMAB [Concomitant]
     Active Substance: DENOSUMAB

REACTIONS (32)
  - Feeding disorder [Unknown]
  - Vomiting [Unknown]
  - Adrenal disorder [Unknown]
  - Dehydration [Unknown]
  - Malaise [Not Recovered/Not Resolved]
  - Dry skin [Not Recovered/Not Resolved]
  - Asthenia [Unknown]
  - Weight decreased [Not Recovered/Not Resolved]
  - Diarrhoea [Not Recovered/Not Resolved]
  - Gastric disorder [Unknown]
  - Vitamin B12 decreased [Unknown]
  - Eye haemorrhage [Unknown]
  - Irritability [Not Recovered/Not Resolved]
  - Fatigue [Unknown]
  - Off label use [Unknown]
  - Product dose omission issue [Unknown]
  - COVID-19 [Not Recovered/Not Resolved]
  - Illness [Unknown]
  - Memory impairment [Unknown]
  - Uveitis [Unknown]
  - Anaemia [Not Recovered/Not Resolved]
  - Alopecia [Unknown]
  - Sunburn [Unknown]
  - Hypertension [Unknown]
  - Nasopharyngitis [Unknown]
  - Headache [Unknown]
  - Acute sinusitis [Unknown]
  - Throat irritation [Unknown]
  - Ear discomfort [Unknown]
  - Sleep disorder [Not Recovered/Not Resolved]
  - Vision blurred [Recovered/Resolved]
  - Hypotension [Not Recovered/Not Resolved]

NARRATIVE: CASE EVENT DATE: 20180101
